FAERS Safety Report 9260468 (Version 1)
Quarter: 2013Q2

REPORT INFORMATION
  Report Type: Spontaneous
  Country: US (occurrence: US)
  Receive Date: 20130429
  Receipt Date: 20130429
  Transmission Date: 20140414
  Serious: No
  Sender: FDA-Public Use
  Company Number: US-PFIZER INC-2013133587

PATIENT
  Age: 63 Year
  Sex: Female
  Weight: 82.54 kg

DRUGS (2)
  1. NEURONTIN [Suspect]
     Indication: NERVE INJURY
     Dosage: 600 MG, FOUR TIMES A DAY
     Dates: start: 2011
  2. SYNTHROID [Concomitant]
     Indication: THYROID DISORDER
     Dosage: 0.75 UG, UNK

REACTIONS (3)
  - Drug ineffective [Unknown]
  - Back pain [Unknown]
  - Hypoaesthesia [Unknown]
